FAERS Safety Report 9730271 (Version 1)
Quarter: 2013Q4

REPORT INFORMATION
  Report Type: Spontaneous
  Country: US (occurrence: US)
  Receive Date: 20131202
  Receipt Date: 20131202
  Transmission Date: 20140711
  Serious: Yes (Hospitalization)
  Sender: FDA-Public Use
  Company Number: US-SA-2013SA123752

PATIENT
  Age: 31 Year
  Sex: Male

DRUGS (2)
  1. LOVENOX [Suspect]
     Route: 065
     Dates: start: 20131120
  2. COUMADIN [Suspect]
     Route: 065

REACTIONS (7)
  - Anaemia [Unknown]
  - Abdominal discomfort [Unknown]
  - Abdominal pain upper [Unknown]
  - Eating disorder [Unknown]
  - Diarrhoea [Unknown]
  - Thrombosis [Unknown]
  - Oedema peripheral [Unknown]
